FAERS Safety Report 8181285-5 (Version None)
Quarter: 2012Q1

REPORT INFORMATION
  Report Type: 
  Country: None (occurrence: None)
  Receive Date: 20120302
  Receipt Date: 20120227
  Transmission Date: 20120608
  Serious: Yes (Other)
  Sender: FDA-Public Use
  Company Number: US-PFIZER INC-2012042759

PATIENT
  Sex: Female

DRUGS (3)
  1. HALCION [Suspect]
     Dosage: UNK
     Route: 048
  2. HALCION [Suspect]
     Indication: SLEEP DISORDER
     Dosage: 0.25 MG, 1X/DAY
     Route: 048
  3. INSULIN [Concomitant]
     Indication: DIABETES MELLITUS
     Dosage: UNK

REACTIONS (5)
  - FIBROMYALGIA [None]
  - BREAST CANCER [None]
  - SURGERY [None]
  - ARTERIAL STENT INSERTION [None]
  - HYPERTONIC BLADDER [None]
